FAERS Safety Report 20854736 (Version 1)
Quarter: 2022Q2

REPORT INFORMATION
  Report Type: Spontaneous
  Country: US (occurrence: None)
  Receive Date: 20220519
  Receipt Date: 20220519
  Transmission Date: 20220721
  Serious: No
  Sender: FDA-Public Use
  Company Number: None

PATIENT
  Age: 47 Year
  Sex: Female
  Weight: 63.5 kg

DRUGS (9)
  1. ESTRADIOL [Suspect]
     Active Substance: ESTRADIOL
     Indication: Menopausal symptoms
     Dosage: 1 PATCH TWICE WEEKLY ON SKIN?
     Route: 058
     Dates: start: 20220321
  2. ESTRING [Concomitant]
     Active Substance: ESTRADIOL
  3. PROGESTERONE [Concomitant]
     Active Substance: PROGESTERONE
  4. TESTOSTERON CREAM [Concomitant]
  5. IMITREX [Concomitant]
     Active Substance: SUMATRIPTAN SUCCINATE
  6. VITAMIN D [Concomitant]
     Active Substance: VITAMIN D NOS
  7. SYNTHROID [Concomitant]
     Active Substance: LEVOTHYROXINE SODIUM
  8. ESTRIVERA [Concomitant]
  9. IRON [Concomitant]
     Active Substance: IRON

REACTIONS (5)
  - Application site erythema [None]
  - Application site pruritus [None]
  - Application site discolouration [None]
  - Skin reaction [None]
  - Product substitution issue [None]

NARRATIVE: CASE EVENT DATE: 20220321
